FAERS Safety Report 4267185-1 (Version None)
Quarter: 2004Q1

REPORT INFORMATION
  Report Type: 
  Country: None (occurrence: None)
  Receive Date: 20040107
  Receipt Date: 20031201
  Transmission Date: 20041129
  Serious: Yes (Hospitalization)
  Sender: FDA-Public Use
  Company Number: 2003GB03225

PATIENT
  Age: 18 Year
  Sex: Male

DRUGS (4)
  1. NAROPIN [Suspect]
     Indication: ANAESTHESIA
     Dosage: 10 ML ONCE IM
     Route: 030
  2. FENTANYL [Concomitant]
  3. PROPOFOL [Concomitant]
  4. SEVOFLURANE [Concomitant]

REACTIONS (3)
  - ANAESTHETIC COMPLICATION [None]
  - INJECTION SITE DISCOLOURATION [None]
  - PALLOR [None]
